FAERS Safety Report 9160353 (Version 2)
Quarter: 2013Q4

REPORT INFORMATION
  Report Type: Report from Study
  Country: GB (occurrence: GB)
  Receive Date: 20130313
  Receipt Date: 20131018
  Transmission Date: 20140711
  Serious: Yes (Death, Hospitalization, Other)
  Sender: FDA-Public Use
  Company Number: GB-ROCHE-1201070

PATIENT
  Sex: Female
  Weight: 65 kg

DRUGS (1)
  1. RITUXIMAB [Suspect]
     Indication: RHEUMATOID ARTHRITIS
     Dosage: LAST DOSE PRIOR TO SAE : 18/AUG/2011
     Route: 065
     Dates: start: 20100826

REACTIONS (3)
  - Lower respiratory tract infection [Fatal]
  - Immobile [Fatal]
  - Atrial fibrillation [Unknown]
